FAERS Safety Report 10490617 (Version 2)
Quarter: 2014Q4

REPORT INFORMATION
  Report Type: Report from Study
  Country: US (occurrence: US)
  Receive Date: 20141002
  Receipt Date: 20141002
  Transmission Date: 20150528
  Serious: No
  Sender: FDA-Public Use
  Company Number: US-GLAXOSMITHKLINE-A0964254A

PATIENT
  Sex: Female

DRUGS (2)
  1. ADVAIR HFA [Suspect]
     Active Substance: FLUTICASONE PROPIONATE\SALMETEROL XINAFOATE
     Indication: PRODUCT USED FOR UNKNOWN INDICATION
     Route: 055
  2. VENTOLIN HFA [Suspect]
     Active Substance: ALBUTEROL SULFATE
     Indication: CHRONIC OBSTRUCTIVE PULMONARY DISEASE
     Dosage: 90MCG UNKNOWN
     Route: 055

REACTIONS (18)
  - Herpes zoster [Unknown]
  - Pain [Not Recovered/Not Resolved]
  - Gait disturbance [Unknown]
  - Blood glucose increased [Recovering/Resolving]
  - Malaise [Unknown]
  - Drug ineffective [Unknown]
  - Fall [Unknown]
  - Cough [Unknown]
  - Neuropathy peripheral [Unknown]
  - Muscular weakness [Unknown]
  - Balance disorder [Unknown]
  - Bronchitis [Not Recovered/Not Resolved]
  - Peripheral arterial occlusive disease [Unknown]
  - Peripheral swelling [Unknown]
  - Dyspnoea [Unknown]
  - Somnolence [Unknown]
  - Walking aid user [Unknown]
  - Muscle spasms [Unknown]

NARRATIVE: CASE EVENT DATE: 201205
